FAERS Safety Report 5333459-6 (Version None)
Quarter: 2007Q2

REPORT INFORMATION
  Report Type: 
  Country: None (occurrence: None)
  Receive Date: 20070522
  Receipt Date: 20070522
  Transmission Date: 20071010
  Serious: Yes (Life-Threatening, Hospitalization, Other)
  Sender: FDA-Public Use
  Company Number: None

PATIENT
  Age: 47 Year
  Sex: Male
  Weight: 95.2554 kg

DRUGS (1)
  1. GABAPENTIN [Suspect]
     Indication: ANALGESIC EFFECT
     Dosage: 900MG 3X DAILY PO
     Route: 048
     Dates: start: 20040827, end: 20060921

REACTIONS (4)
  - DEPRESSION [None]
  - PARTNER STRESS [None]
  - SOCIAL PROBLEM [None]
  - SUICIDAL IDEATION [None]
